FAERS Safety Report 6070633-8 (Version None)
Quarter: 2009Q1

REPORT INFORMATION
  Report Type: 
  Country: None (occurrence: None)
  Receive Date: 20090209
  Receipt Date: 20090206
  Transmission Date: 20090719
  Serious: Yes (Disabling)
  Sender: FDA-Public Use
  Company Number: BR-BRISTOL-MYERS SQUIBB COMPANY-14088066

PATIENT
  Age: 42 Year
  Sex: Female

DRUGS (7)
  1. ABATACEPT [Suspect]
     Indication: CROHN'S DISEASE
     Dosage: BLINDED ON 23-OCT-2007 AND OPEN-LABEL ON 17-JAN-2008 AND CONTINUED.
     Route: 042
     Dates: start: 20071023
  2. MESALAMINE [Concomitant]
     Dates: start: 20060301
  3. FLUOXETINE HCL [Concomitant]
     Dates: start: 20060805
  4. AMITRIPTYLINE HCL [Concomitant]
     Dates: start: 20050101
  5. OMEPRAZOLE [Concomitant]
     Dates: start: 20060101
  6. PROPRANOLOL [Concomitant]
     Dates: start: 20050101
  7. LOPERAMIDE HCL [Concomitant]
     Dates: start: 20071127

REACTIONS (1)
  - OESOPHAGITIS [None]
